FAERS Safety Report 7369171-1 (Version None)
Quarter: 2011Q1

REPORT INFORMATION
  Report Type: 
  Country: None (occurrence: None)
  Receive Date: 20110314
  Receipt Date: 20110225
  Transmission Date: 20110831
  Serious: Yes (Other)
  Sender: FDA-Public Use
  Company Number: 2011SP001730

PATIENT
  Age: 68 Year
  Sex: Male
  Weight: 77.8372 kg

DRUGS (13)
  1. FIORICET [Concomitant]
  2. PEG-INTRON [Suspect]
     Indication: HEPATITIS C
     Dosage: 120 MCG; QW; SC, 2 DF; QAM;, 3 DF; QPM;
     Route: 058
     Dates: start: 20100601, end: 20110106
  3. RIBAVIRIN [Suspect]
     Indication: PRODUCT USED FOR UNKNOWN INDICATION
  4. TRIAMTERENE AND HYDROCHLOROTHIAZIDE [Concomitant]
  5. BUSPIRONE HCL [Concomitant]
  6. DESONIDE LOTION [Concomitant]
  7. TEMAZEPAM [Concomitant]
  8. ASCORBIC ACID [Concomitant]
  9. GLUCOSAMINE CHONDROITIN [Concomitant]
  10. SELENIUM [Concomitant]
  11. ALPHA LIPOIC ACID [Concomitant]
  12. VITAMIN E [Concomitant]
  13. OMEPRAZOLE [Concomitant]

REACTIONS (5)
  - EYE HAEMORRHAGE [None]
  - BLINDNESS [None]
  - IMPAIRED DRIVING ABILITY [None]
  - RETINAL ARTERY OCCLUSION [None]
  - CAROTID ARTERY STENOSIS [None]
